FAERS Safety Report 8611799-2 (Version None)
Quarter: 2012Q3

REPORT INFORMATION
  Report Type: 
  Country: None (occurrence: None)
  Receive Date: 20120822
  Receipt Date: 20120807
  Transmission Date: 20120928
  Serious: Yes (Congenital Anomaly)
  Sender: FDA-Public Use
  Company Number: DE-ROCHE-1102604

PATIENT

DRUGS (3)
  1. COPEGUS [Suspect]
     Indication: HEPATITIS C
     Route: 050
  2. BLINDED DACLATASVIR [Suspect]
     Indication: HEPATITIS C
     Route: 050
  3. PEGASYS [Suspect]
     Indication: HEPATITIS C
     Route: 050

REACTIONS (2)
  - FOETAL MALFORMATION [None]
  - EXPOSURE VIA FATHER [None]
